FAERS Safety Report 9440199 (Version 1)
Quarter: 2013Q3

REPORT INFORMATION
  Report Type: Spontaneous
  Country: FR (occurrence: FR)
  Receive Date: 20130805
  Receipt Date: 20130805
  Transmission Date: 20140515
  Serious: Yes (Hospitalization)
  Sender: FDA-Public Use
  Company Number: PHHY2013FR082562

PATIENT
  Age: 13 Year
  Sex: Male

DRUGS (9)
  1. LEPONEX [Suspect]
     Indication: AGGRESSION
     Dosage: UNK
     Route: 048
     Dates: start: 20100713
  2. LEPONEX [Suspect]
     Dosage: UNK, BETWEEN 200 TO 300 MG, DAILY
     Dates: start: 20100913
  3. LEPONEX [Suspect]
     Dosage: 450 MG, DAILY
     Dates: start: 20110422, end: 20110808
  4. DEPAMIDE [Concomitant]
     Dosage: UNK
  5. RISPERDAL [Concomitant]
     Dosage: UNK
  6. VALIUM [Concomitant]
     Dosage: UNK
  7. STILNOX [Concomitant]
     Dosage: UNK
  8. ATARAX [Concomitant]
     Dosage: UNK
  9. RISPERDAL CONSTA [Concomitant]
     Dosage: UNK

REACTIONS (1)
  - Abnormal behaviour [Recovered/Resolved]
